FAERS Safety Report 4506159-X (Version None)
Quarter: 2004Q4

REPORT INFORMATION
  Report Type: 
  Country: None (occurrence: None)
  Receive Date: 20041025
  Receipt Date: 20031212
  Transmission Date: 20050328
  Serious: Yes (Hospitalization)
  Sender: FDA-Public Use
  Company Number: US-JNJFOC-20030805357

PATIENT
  Sex: Female

DRUGS (2)
  1. REMICADE [Suspect]
     Indication: CROHN'S DISEASE
     Dosage: 5 MG/KG, 1 IN 1 DAY, INTRAVENOUS
     Route: 042
     Dates: start: 20030805
  2. ASACOL [Concomitant]

REACTIONS (5)
  - CHEST PAIN [None]
  - HOARSENESS [None]
  - INFUSION RELATED REACTION [None]
  - LUNG DISORDER [None]
  - PRURITUS [None]
